FAERS Safety Report 7890090-6 (Version None)
Quarter: 2011Q4

REPORT INFORMATION
  Report Type: 
  Country: None (occurrence: None)
  Receive Date: 20111103
  Receipt Date: 20111028
  Transmission Date: 20120403
  Serious: Yes (Hospitalization)
  Sender: FDA-Public Use
  Company Number: DE-ROCHE-1008770

PATIENT
  Sex: Male
  Weight: 81 kg

DRUGS (6)
  1. INTERFERON ALFA [Concomitant]
     Indication: METASTATIC RENAL CELL CARCINOMA
     Route: 058
  2. ATACAND HCT [Concomitant]
     Indication: ESSENTIAL HYPERTENSION
     Route: 048
  3. ASPIRIN [Concomitant]
     Route: 048
  4. AVASTIN [Suspect]
     Indication: METASTATIC RENAL CELL CARCINOMA
     Route: 042
  5. VALORON [Concomitant]
     Indication: PAIN
     Dosage: DOSE 100/8 MG
     Route: 048
  6. NOVAMINSULFON [Concomitant]
     Indication: PAIN
     Dosage: DOSE: 25-30 GTT
     Route: 048

REACTIONS (1)
  - HEMIPARESIS [None]
